FAERS Safety Report 9712508 (Version 1)
Quarter: 2013Q4

REPORT INFORMATION
  Report Type: Spontaneous
  Country: US (occurrence: US)
  Receive Date: 20131126
  Receipt Date: 20131126
  Transmission Date: 20140711
  Serious: No
  Sender: FDA-Public Use
  Company Number: US-BRISTOL-MYERS SQUIBB COMPANY-19193713

PATIENT
  Sex: Female
  Weight: 81.18 kg

DRUGS (17)
  1. BYDUREON [Suspect]
     Indication: INSULIN RESISTANT DIABETES
     Dosage: START: FEB-MAR2012?EXP: FEB2016
     Dates: start: 2012
  2. METFORMIN [Concomitant]
  3. TRICOR [Concomitant]
  4. CRESTOR [Concomitant]
  5. LEVOTHYROXINE [Concomitant]
  6. ESTRADIOL [Concomitant]
  7. CALCIUM + VITAMIN D [Concomitant]
  8. ETODOLAC [Concomitant]
  9. FISH OIL [Concomitant]
  10. VITAMIN D [Concomitant]
  11. FIBERCON [Concomitant]
  12. MULTIVITAMIN [Concomitant]
  13. LUNESTA [Concomitant]
  14. MELATONIN [Concomitant]
  15. OXYBUTYNIN [Concomitant]
  16. ASPIRIN [Concomitant]
  17. COLACE [Concomitant]

REACTIONS (2)
  - Weight decreased [Not Recovered/Not Resolved]
  - Injection site pain [Not Recovered/Not Resolved]
